FAERS Safety Report 5385547-6 (Version None)
Quarter: 2007Q3

REPORT INFORMATION
  Report Type: 
  Country: None (occurrence: None)
  Receive Date: 20070712
  Receipt Date: 20070706
  Transmission Date: 20080115
  Serious: Yes (Hospitalization)
  Sender: FDA-Public Use
  Company Number: B0474060A

PATIENT
  Age: 75 Year
  Sex: Male
  Weight: 53 kg

DRUGS (1)
  1. ZOVIRAX [Suspect]
     Indication: ENCEPHALITIS HERPES
     Dosage: 500MG THREE TIMES PER DAY
     Route: 042
     Dates: start: 20070529, end: 20070531

REACTIONS (12)
  - ALTERED STATE OF CONSCIOUSNESS [None]
  - DELIRIUM [None]
  - DISORIENTATION [None]
  - DISTURBANCE IN SOCIAL BEHAVIOUR [None]
  - DRUG LEVEL INCREASED [None]
  - DYSKINESIA [None]
  - ENCEPHALOPATHY [None]
  - NEUROGENIC BLADDER [None]
  - NEUROSIS [None]
  - RESTLESSNESS [None]
  - SOLILOQUY [None]
  - SPEECH DISORDER [None]
